FAERS Safety Report 20073081 (Version 1)
Quarter: 2021Q4

REPORT INFORMATION
  Report Type: Spontaneous
  Country: US (occurrence: US)
  Receive Date: 20211116
  Receipt Date: 20211116
  Transmission Date: 20220303
  Serious: Yes (Hospitalization)
  Sender: FDA-Public Use
  Company Number: US-BIOVITRUM-2021US10530

PATIENT
  Sex: Male

DRUGS (16)
  1. SYNAGIS [Suspect]
     Active Substance: PALIVIZUMAB
     Indication: Atrial septal defect
     Route: 030
     Dates: start: 20211013
  2. SYNAGIS [Suspect]
     Active Substance: PALIVIZUMAB
     Indication: Congenital hypothyroidism
     Route: 030
     Dates: start: 20211013
  3. SYNAGIS [Suspect]
     Active Substance: PALIVIZUMAB
     Indication: Premature baby
     Route: 030
     Dates: start: 20211013
  4. SYNAGIS [Suspect]
     Active Substance: PALIVIZUMAB
     Indication: Bronchopulmonary dysplasia
     Route: 030
     Dates: start: 20211013
  5. SYNAGIS [Suspect]
     Active Substance: PALIVIZUMAB
     Indication: Atrial septal defect
     Route: 030
  6. SYNAGIS [Suspect]
     Active Substance: PALIVIZUMAB
     Indication: Congenital hypothyroidism
     Route: 030
  7. SYNAGIS [Suspect]
     Active Substance: PALIVIZUMAB
     Indication: Premature baby
     Route: 030
  8. SYNAGIS [Suspect]
     Active Substance: PALIVIZUMAB
     Indication: Bronchopulmonary dysplasia
     Route: 030
  9. SYNAGIS [Suspect]
     Active Substance: PALIVIZUMAB
     Indication: Atrial septal defect
     Route: 030
  10. SYNAGIS [Suspect]
     Active Substance: PALIVIZUMAB
     Indication: Congenital hypothyroidism
     Route: 030
  11. SYNAGIS [Suspect]
     Active Substance: PALIVIZUMAB
     Indication: Premature baby
     Route: 030
  12. SYNAGIS [Suspect]
     Active Substance: PALIVIZUMAB
     Indication: Bronchopulmonary dysplasia
     Route: 030
  13. SYNAGIS [Suspect]
     Active Substance: PALIVIZUMAB
     Indication: Atrial septal defect
     Route: 030
  14. SYNAGIS [Suspect]
     Active Substance: PALIVIZUMAB
     Indication: Congenital hypothyroidism
     Route: 030
  15. SYNAGIS [Suspect]
     Active Substance: PALIVIZUMAB
     Indication: Premature baby
     Route: 030
  16. SYNAGIS [Suspect]
     Active Substance: PALIVIZUMAB
     Indication: Bronchopulmonary dysplasia
     Route: 030

REACTIONS (1)
  - Respiratory syncytial virus infection [Unknown]
